FAERS Safety Report 24020977 (Version 1)
Quarter: 2024Q2

REPORT INFORMATION
  Report Type: Spontaneous
  Country: IT (occurrence: IT)
  Receive Date: 20240627
  Receipt Date: 20240627
  Transmission Date: 20240715
  Serious: Yes (Other)
  Sender: FDA-Public Use
  Company Number: IT-TEVA-VS-3213470

PATIENT
  Sex: Male

DRUGS (1)
  1. PROPAFENONE [Suspect]
     Active Substance: PROPAFENONE
     Indication: Product used for unknown indication
     Route: 065

REACTIONS (3)
  - Cardiac fibrillation [Unknown]
  - Product physical issue [Unknown]
  - Intentional overdose [Unknown]
